FAERS Safety Report 9197324 (Version 1)
Quarter: 2013Q1

REPORT INFORMATION
  Report Type: Spontaneous
  Country: SN (occurrence: SN)
  Receive Date: 20130328
  Receipt Date: 20130328
  Transmission Date: 20140127
  Serious: Yes (Hospitalization)
  Sender: FDA-Public Use
  Company Number: PHHY2013SN029039

PATIENT
  Age: 70 Year
  Sex: Male

DRUGS (5)
  1. FLOTAC [Suspect]
     Indication: BACK PAIN
     Dosage: 1 DF (1 CAPSULE PER DAY)
     Route: 048
  2. FLUDITEC [Concomitant]
  3. DOLI RHUME [Concomitant]
  4. UPSA C [Concomitant]
  5. MAALOX [Concomitant]

REACTIONS (1)
  - Haematemesis [Recovered/Resolved]
